FAERS Safety Report 11500573 (Version 4)
Quarter: 2016Q1

REPORT INFORMATION
  Report Type: Spontaneous
  Country: US (occurrence: US)
  Receive Date: 20150914
  Receipt Date: 20160211
  Transmission Date: 20160525
  Serious: Yes (Hospitalization, Other)
  Sender: FDA-Public Use
  Company Number: US-PFIZER INC-2015303390

PATIENT
  Age: 37 Year
  Sex: Male

DRUGS (17)
  1. NEURONTIN [Concomitant]
     Active Substance: GABAPENTIN
     Dosage: UNK
     Dates: start: 2003
  2. ATENOLOL. [Concomitant]
     Active Substance: ATENOLOL
     Dosage: 100 MG, 1X/DAY (1 X NIGHT)
  3. BENZACLIN TOPICAL [Concomitant]
     Dosage: UNK, 2X/DAY (1 X MORNING, 1 X EVENING)
  4. CETIRIZINE HCL [Concomitant]
     Active Substance: CETIRIZINE HYDROCHLORIDE
     Dosage: 10 MG, 1X/DAY (1 X MORNING)
  5. POLYETHYLENE GLYCOL 3350. [Concomitant]
     Active Substance: POLYETHYLENE GLYCOL 3350
     Dosage: 17 G, AS NEEDED (1 X DAY)
  6. STRATTERA [Concomitant]
     Active Substance: ATOMOXETINE HYDROCHLORIDE
     Dosage: UNK
     Dates: start: 20100111
  7. METFORMIN HCL [Concomitant]
     Active Substance: METFORMIN HYDROCHLORIDE
     Dosage: 1000 MG, 1X/DAY (1 X EVENING)
  8. OMEPRAZOLE. [Concomitant]
     Active Substance: OMEPRAZOLE
     Dosage: 20 MG, 2X/DAY (1 X MORNING AND 1 X EVENING)
  9. GEODON [Suspect]
     Active Substance: ZIPRASIDONE HYDROCHLORIDE\ZIPRASIDONE MESYLATE
     Indication: PSYCHOTIC DISORDER
     Dosage: 20 MG, UNK
     Route: 048
     Dates: start: 20100406, end: 2010
  10. GEODON [Suspect]
     Active Substance: ZIPRASIDONE HYDROCHLORIDE\ZIPRASIDONE MESYLATE
     Indication: SCHIZOPHRENIA
  11. SIMVASTATIN. [Concomitant]
     Active Substance: SIMVASTATIN
     Dosage: 40 MG, 1X/DAY (1 X BED TIME)
  12. CLOZAPINE. [Concomitant]
     Active Substance: CLOZAPINE
     Dosage: 50 MG, 1X/DAY (1 X BEDTIME)
  13. GABAPENTIN. [Concomitant]
     Active Substance: GABAPENTIN
     Dosage: 400 MG, 2X/DAY (1 X MORNING AND 1 X NOON)
  14. KETOCONAZOLE. [Concomitant]
     Active Substance: KETOCONAZOLE
     Dosage: UNK, 2X/DAY (2%: 1 X MORNING @ 1 X EVENING)
  15. HYDROCORTISONE. [Concomitant]
     Active Substance: HYDROCORTISONE
     Dosage: UNK UNK, 2X/DAY (2.5%: 1 X MORNING AND 1 X EVENING)
  16. SUCRALFATE. [Concomitant]
     Active Substance: SUCRALFATE
     Dosage: UNK, 2X/DAY (1 X MORNING AND 1 X EVENING)
  17. DOCQLACE [Concomitant]
     Active Substance: DOCUSATE SODIUM
     Dosage: 100 MG, 2X/DAY (1 X MORNING AND 1 X EVENING)

REACTIONS (14)
  - Abnormal behaviour [Unknown]
  - Agitation [Recovered/Resolved]
  - Seizure [Recovered/Resolved]
  - Aggression [Recovered/Resolved]
  - Thanatophobia [Unknown]
  - Sluggishness [Unknown]
  - Drug withdrawal syndrome [Recovered/Resolved]
  - Paranoia [Unknown]
  - Fatigue [Unknown]
  - Panic attack [Recovered/Resolved]
  - Depression [Unknown]
  - Abnormal behaviour [Recovered/Resolved]
  - Blood glucose increased [Unknown]
  - Tremor [Unknown]

NARRATIVE: CASE EVENT DATE: 2010
